FAERS Safety Report 8066709-6 (Version None)
Quarter: 2012Q1

REPORT INFORMATION
  Report Type: 
  Country: None (occurrence: None)
  Receive Date: 20120124
  Receipt Date: 20120113
  Transmission Date: 20120608
  Serious: No
  Sender: FDA-Public Use
  Company Number: US-ELI_LILLY_AND_COMPANY-US201112006038

PATIENT
  Age: 55 Year
  Sex: Female
  Weight: 106.1 kg

DRUGS (3)
  1. ADCIRCA [Suspect]
     Dosage: 20MG, QD
     Route: 048
     Dates: start: 20111212
  2. REMODULIN [Concomitant]
     Indication: PULMONARY EMBOLISM
     Dosage: UNK
     Route: 042
     Dates: start: 20111123
  3. COUMADIN [Concomitant]

REACTIONS (1)
  - HYPOTENSION [None]
